FAERS Safety Report 6575654-4 (Version None)
Quarter: 2010Q2

REPORT INFORMATION
  Report Type: 
  Country: None (occurrence: None)
  Receive Date: 20100208
  Receipt Date: 20100208
  Transmission Date: 20101027
  Serious: Yes (Hospitalization)
  Sender: FDA-Public Use
  Company Number: None

PATIENT
  Age: 69 Year
  Sex: Female
  Weight: 62.1 kg

DRUGS (18)
  1. DOCETAXEL [Suspect]
     Indication: NON-SMALL CELL LUNG CANCER
     Dosage: 56.25MG/M2, IV DAY 1 Q3W
     Route: 042
     Dates: start: 20100119
  2. GEMCITABINE [Suspect]
     Indication: NON-SMALL CELL LUNG CANCER
     Dosage: 675MG/M2, IV DAYS1+8 Q3W
     Route: 042
     Dates: start: 20100119
  3. BEVACIZUMAB [Suspect]
     Indication: NON-SMALL CELL LUNG CANCER
     Dosage: 15 MG/KG, IV DAY1 Q3W
     Route: 042
     Dates: start: 20100119
  4. PEGFILGRASTIM [Concomitant]
  5. POTASSIUM CHLORIDE [Concomitant]
  6. VANLAFAXINE ER [Concomitant]
  7. BMX SOLN [Concomitant]
  8. ALBUTEROL [Concomitant]
  9. WARFARIN [Concomitant]
  10. DEXAMETHASONE [Concomitant]
  11. PROCHLORPERAZINE [Concomitant]
  12. LISINOPRIL [Concomitant]
  13. FOLIC ACID [Concomitant]
  14. VIT D [Concomitant]
  15. DIPHENHYDRAMINE HCL [Concomitant]
  16. PROPANOLOL ER [Concomitant]
  17. HYDROCHLOROTHIAZIDE [Concomitant]
  18. MULTI-VITAMIN [Concomitant]

REACTIONS (3)
  - ATRIAL FIBRILLATION [None]
  - CARDIAC FAILURE CONGESTIVE [None]
  - LYMPHANGITIS [None]
